FAERS Safety Report 5744141-5 (Version None)
Quarter: 2008Q2

REPORT INFORMATION
  Report Type: 
  Country: None (occurrence: None)
  Receive Date: 20080520
  Receipt Date: 20080514
  Transmission Date: 20081010
  Serious: Yes (Hospitalization)
  Sender: FDA-Public Use
  Company Number: B0521148A

PATIENT
  Age: 53 Month
  Sex: Female
  Weight: 18.2 kg

DRUGS (1)
  1. CEFUROXIME [Suspect]
     Indication: PHARYNGITIS
     Route: 065

REACTIONS (4)
  - CARDIAC MURMUR [None]
  - LIP OEDEMA [None]
  - RASH [None]
  - VOMITING [None]
